FAERS Safety Report 10701652 (Version 2)
Quarter: 2015Q1

REPORT INFORMATION
  Report Type: Spontaneous
  Country: US (occurrence: US)
  Receive Date: 20150109
  Receipt Date: 20150203
  Transmission Date: 20150721
  Serious: No
  Sender: FDA-Public Use
  Company Number: US-PFIZER INC-2015007630

PATIENT
  Age: 53 Year
  Sex: Female

DRUGS (2)
  1. NEURONTIN [Suspect]
     Active Substance: GABAPENTIN
     Dosage: 75 11 AM, PM + THS (5 PER DAY)
  2. PRENATAL VITAMINS [Suspect]
     Active Substance: VITAMINS
     Dosage: UNK

REACTIONS (1)
  - Drug hypersensitivity [Unknown]
